FAERS Safety Report 9214894 (Version 2)
Quarter: 2013Q2

REPORT INFORMATION
  Report Type: Spontaneous
  Country: FR (occurrence: FR)
  Receive Date: 20130405
  Receipt Date: 20130528
  Transmission Date: 20140414
  Serious: Yes (Hospitalization)
  Sender: FDA-Public Use
  Company Number: FR-BRISTOL-MYERS SQUIBB COMPANY-18722173

PATIENT
  Age: 58 Year
  Sex: Male

DRUGS (13)
  1. ETOPOPHOS [Suspect]
     Indication: METASTATIC BRONCHIAL CARCINOMA
     Route: 051
     Dates: start: 20121126, end: 20130130
  2. CISPLATIN [Suspect]
     Indication: METASTATIC BRONCHIAL CARCINOMA
     Dosage: CYSPLATIN MYLAN
     Route: 042
     Dates: start: 20121126, end: 20130129
  3. NEULASTA [Suspect]
     Indication: PREMEDICATION
     Dosage: SOLUTION FOR INJ
     Route: 042
     Dates: start: 201212, end: 201301
  4. GRANISETRON [Suspect]
     Indication: PREMEDICATION
     Dosage: 1 DF: 3 MG/3ML
     Route: 042
     Dates: start: 20121126, end: 20130131
  5. LARGACTIL [Suspect]
     Indication: PREMEDICATION
     Dosage: 1 DF:25MG/5ML
     Route: 042
     Dates: start: 20121126, end: 20130129
  6. TRANXENE [Suspect]
     Indication: PREMEDICATION
     Dosage: 100MG/5ML
     Route: 042
     Dates: start: 20121126, end: 20130129
  7. METHYLPREDNISOLONE [Concomitant]
  8. FASTURTEC [Concomitant]
  9. INEXIUM [Concomitant]
  10. KEPPRA [Concomitant]
  11. LOVENOX [Concomitant]
     Dosage: LEVONOX 40
  12. SOLUPRED [Concomitant]
  13. GRANOCYTE [Concomitant]

REACTIONS (2)
  - Hydrocephalus [Recovered/Resolved]
  - Fall [Unknown]
